FAERS Safety Report 26125892 (Version 1)
Quarter: 2025Q4

REPORT INFORMATION
  Report Type: Spontaneous
  Country: US (occurrence: None)
  Receive Date: 20251205
  Receipt Date: 20251205
  Transmission Date: 20260118
  Serious: Yes (Other)
  Sender: CHIESI
  Company Number: US-CHIESI-2025CHF08648

PATIENT
  Sex: Male

DRUGS (1)
  1. ELFABRIO [Suspect]
     Active Substance: PEGUNIGALSIDASE ALFA-IWXJ
     Indication: Fabry^s disease
     Dosage: UNK
     Route: 065

REACTIONS (7)
  - Osteomyelitis [Unknown]
  - Wound [Unknown]
  - Dry skin [Unknown]
  - Impaired healing [Unknown]
  - Localised infection [Unknown]
  - Skin fissures [Unknown]
  - Wound infection [Unknown]
